FAERS Safety Report 9405514 (Version 1)
Quarter: 2013Q3

REPORT INFORMATION
  Report Type: Spontaneous
  Country: US (occurrence: US)
  Receive Date: 20130717
  Receipt Date: 20130717
  Transmission Date: 20140515
  Serious: No
  Sender: FDA-Public Use
  Company Number: US-009507513-1307USA006177

PATIENT
  Age: 23 Year
  Sex: Female
  Weight: 61.68 kg

DRUGS (1)
  1. NEXPLANON [Suspect]
     Indication: CONTRACEPTION
     Dosage: 1 ROD UP TO 3 YEARS
     Dates: start: 201306

REACTIONS (3)
  - Muscle spasms [Unknown]
  - Headache [Unknown]
  - Metrorrhagia [Unknown]
